FAERS Safety Report 20962781 (Version 1)
Quarter: 2022Q2

REPORT INFORMATION
  Report Type: Spontaneous
  Country: US (occurrence: US)
  Receive Date: 20220615
  Receipt Date: 20220615
  Transmission Date: 20220721
  Serious: No
  Sender: FDA-Public Use
  Company Number: US-PFIZER INC-202200834936

PATIENT
  Age: 55 Year
  Sex: Male
  Weight: 85.261 kg

DRUGS (1)
  1. PAXLOVID [Suspect]
     Active Substance: NIRMATRELVIR\RITONAVIR
     Indication: COVID-19 treatment
     Dosage: 2 DF, DAILY (5 DAY COURSE, 2 PILLS PER DAY, TOOK 1 PILL IN THE MORNING AND 1 PILL IN THE EVENING)
     Route: 048
     Dates: start: 20220528, end: 20220601

REACTIONS (2)
  - Disease recurrence [Not Recovered/Not Resolved]
  - COVID-19 [Not Recovered/Not Resolved]

NARRATIVE: CASE EVENT DATE: 20220609
